FAERS Safety Report 15931082 (Version 10)
Quarter: 2022Q3

REPORT INFORMATION
  Report Type: Report from Study
  Country: NL (occurrence: NL)
  Receive Date: 20190207
  Receipt Date: 20220713
  Transmission Date: 20221027
  Serious: Yes (Other)
  Sender: FDA-Public Use
  Company Number: NL-ABBVIE-19S-114-2652498-00

PATIENT
  Sex: Female
  Weight: 49 kg

DRUGS (9)
  1. CARBIDOPA\LEVODOPA [Suspect]
     Active Substance: CARBIDOPA\LEVODOPA
     Indication: Parkinson^s disease
     Dosage: CONTINUOUS DOSE 0.2 ML/HR
     Route: 050
  2. CARBIDOPA\LEVODOPA [Suspect]
     Active Substance: CARBIDOPA\LEVODOPA
     Dosage: MD: 12.0, CD: 5.6, ED: 4.0 CND: 3.0, END: 2.0
     Route: 050
     Dates: start: 20170823
  3. CARBIDOPA\LEVODOPA [Suspect]
     Active Substance: CARBIDOPA\LEVODOPA
     Dosage: MD: 12.2 CD: 5.8 ED: 4.0 NCD: 3.2 NED: 2.0
     Route: 050
  4. CARBIDOPA\LEVODOPA [Suspect]
     Active Substance: CARBIDOPA\LEVODOPA
     Dosage: MD: 12.2 CD: 6.0 ED: 4.0 NCD: 3.4 NED: 2.0
     Route: 050
  5. CARBIDOPA\LEVODOPA [Suspect]
     Active Substance: CARBIDOPA\LEVODOPA
     Dosage: MD: 12.2 CD: 6.2 ED: 4.0 CND: 3.4 END: 2.0
     Route: 050
     Dates: start: 20170823
  6. CARBIDOPA\LEVODOPA [Suspect]
     Active Substance: CARBIDOPA\LEVODOPA
     Dosage: MD 12.2 ML CD 6.2 ML/H ED 2.0 ML CDN 3.6 ML/H END 2.0ML, REMAINS AT 24 HOURS
     Route: 050
  7. CARBIDOPA\LEVODOPA [Suspect]
     Active Substance: CARBIDOPA\LEVODOPA
     Dosage: MD 12.2 ML; CD 6.4 ML/H; ED 4.0 ML; CND: 3.8 ML/H; END: 2.2 ML
     Route: 050
  8. CARBIDOPA\LEVODOPA [Suspect]
     Active Substance: CARBIDOPA\LEVODOPA
     Dosage: MD 12.2 ML; CD 6.4 ML/H; ED 4.0 ML; CND: 4.2ML/H; END: 2.2 ML
     Route: 050
  9. ROPINIROLE [Concomitant]
     Active Substance: ROPINIROLE
     Indication: Product used for unknown indication

REACTIONS (42)
  - Cataract [Not Recovered/Not Resolved]
  - Weight fluctuation [Recovered/Resolved]
  - Middle insomnia [Not Recovered/Not Resolved]
  - Anosmia [Not Recovered/Not Resolved]
  - General physical condition abnormal [Not Recovered/Not Resolved]
  - Osteoporosis [Not Recovered/Not Resolved]
  - Taste disorder [Not Recovered/Not Resolved]
  - Dysstasia [Not Recovered/Not Resolved]
  - Memory impairment [Not Recovered/Not Resolved]
  - Hypoacusis [Not Recovered/Not Resolved]
  - Gait disturbance [Not Recovered/Not Resolved]
  - Mobility decreased [Not Recovered/Not Resolved]
  - Middle insomnia [Unknown]
  - Muscular weakness [Not Recovered/Not Resolved]
  - Decreased appetite [Recovered/Resolved]
  - Tremor [Not Recovered/Not Resolved]
  - Decreased appetite [Recovered/Resolved]
  - Device difficult to use [Unknown]
  - Hyperhidrosis [Not Recovered/Not Resolved]
  - Malaise [Not Recovered/Not Resolved]
  - Dyskinesia [Not Recovered/Not Resolved]
  - Bradykinesia [Not Recovered/Not Resolved]
  - Therapeutic product effect incomplete [Recovered/Resolved]
  - On and off phenomenon [Not Recovered/Not Resolved]
  - Therapeutic product effect incomplete [Not Recovered/Not Resolved]
  - Parkinson^s disease [Unknown]
  - Fatigue [Not Recovered/Not Resolved]
  - Behaviour disorder [Not Recovered/Not Resolved]
  - Polyneuropathy [Not Recovered/Not Resolved]
  - Ageusia [Not Recovered/Not Resolved]
  - Nocturia [Not Recovered/Not Resolved]
  - Tension [Not Recovered/Not Resolved]
  - Depressed mood [Not Recovered/Not Resolved]
  - Decreased appetite [Recovered/Resolved]
  - Stoma site erythema [Recovered/Resolved]
  - Gait disturbance [Not Recovered/Not Resolved]
  - Abnormal dreams [Not Recovered/Not Resolved]
  - Wrong technique in device usage process [Not Recovered/Not Resolved]
  - Nightmare [Recovered/Resolved]
  - Decreased appetite [Recovered/Resolved]
  - Extra dose administered [Not Recovered/Not Resolved]
  - Asthenia [Not Recovered/Not Resolved]
